FAERS Safety Report 6282478-4 (Version None)
Quarter: 2009Q3

REPORT INFORMATION
  Report Type: 
  Country: None (occurrence: None)
  Receive Date: 20090721
  Receipt Date: 20090721
  Transmission Date: 20100115
  Serious: Yes (Life-Threatening, Hospitalization, Disabling, Other)
  Sender: FDA-Public Use
  Company Number: None

PATIENT
  Age: 62 Year
  Sex: Female
  Weight: 108.8633 kg

DRUGS (1)
  1. LISINOPRIL [Suspect]
     Indication: CARDIAC DISORDER
     Dosage: PO
     Route: 048
     Dates: start: 20090601, end: 20090707

REACTIONS (4)
  - ANGIOEDEMA [None]
  - CARDIAC ARREST [None]
  - COMA [None]
  - OBSTRUCTIVE AIRWAYS DISORDER [None]
